FAERS Safety Report 6631057-5 (Version None)
Quarter: 2010Q1

REPORT INFORMATION
  Report Type: 
  Country: None (occurrence: None)
  Receive Date: 20100311
  Receipt Date: 20100303
  Transmission Date: 20100710
  Serious: Yes (Other)
  Sender: FDA-Public Use
  Company Number: AT-ABBOTT-10P-009-0630318-00

PATIENT
  Age: 3 Year

DRUGS (1)
  1. KLACID I.V. [Suspect]
     Indication: DRUG USE FOR UNKNOWN INDICATION
     Route: 042

REACTIONS (6)
  - DYSPNOEA [None]
  - HYPOTENSION [None]
  - IATROGENIC INJURY [None]
  - OVERDOSE [None]
  - PYREXIA [None]
  - SINUS TACHYCARDIA [None]
